FAERS Safety Report 6609863-2 (Version None)
Quarter: 2010Q1

REPORT INFORMATION
  Report Type: 
  Country: None (occurrence: None)
  Receive Date: 20100225
  Receipt Date: 20100214
  Transmission Date: 20100710
  Serious: Yes (Hospitalization, Other)
  Sender: FDA-Public Use
  Company Number: CL-73-2010

PATIENT
  Age: 88 Year
  Sex: Female

DRUGS (5)
  1. CIPROFLOXACIN [Suspect]
     Indication: DIARRHOEA
     Dosage: 500MG OD INTRAVENOUS
     Route: 042
  2. CIPROFLOXACIN [Suspect]
     Indication: PYREXIA
     Dosage: 500MG OD INTRAVENOUS
     Route: 042
  3. BISOPROLOL [Concomitant]
  4. LERCANIPIDINE [Concomitant]
  5. IRBESARTAN [Concomitant]

REACTIONS (5)
  - DEHYDRATION [None]
  - DIARRHOEA [None]
  - HAEMOLYTIC ANAEMIA [None]
  - NAUSEA [None]
  - VOMITING [None]
